FAERS Safety Report 20923605 (Version 1)
Quarter: 2022Q2

REPORT INFORMATION
  Report Type: Report from Study
  Country: CA (occurrence: CA)
  Receive Date: 20220607
  Receipt Date: 20220607
  Transmission Date: 20220721
  Serious: Yes (Death, Other)
  Sender: FDA-Public Use
  Company Number: CA-BAYER-2022A078613

PATIENT
  Sex: Female

DRUGS (1)
  1. EYLEA [Suspect]
     Active Substance: AFLIBERCEPT
     Indication: Age-related macular degeneration
     Dosage: 2 MG/O.O5 ML,, UNK, SOLUTION FOR INJECTION, STRENGTH: 40MG/ML
     Route: 031
     Dates: start: 20180612

REACTIONS (1)
  - Death [Fatal]
